FAERS Safety Report 23150650 (Version 1)
Quarter: 2023Q4

REPORT INFORMATION
  Report Type: Spontaneous
  Country: JP (occurrence: JP)
  Receive Date: 20231106
  Receipt Date: 20231106
  Transmission Date: 20240110
  Serious: No
  Sender: FDA-Public Use
  Company Number: JP-SCALL-2023-JP-066056

PATIENT
  Sex: Male

DRUGS (3)
  1. DUTASTERIDE [Suspect]
     Active Substance: DUTASTERIDE
     Indication: Prostatomegaly
     Route: 065
     Dates: start: 202212
  2. TAMSULOSIN HYDROCHLORIDE [Concomitant]
     Active Substance: TAMSULOSIN HYDROCHLORIDE
     Route: 065
  3. Harnal (Tamsulosin Hydrochloride) [Concomitant]
     Route: 065

REACTIONS (4)
  - Asthenia [Unknown]
  - Fatigue [Unknown]
  - Somnolence [Unknown]
  - Urinary incontinence [Unknown]
